FAERS Safety Report 17438910 (Version 1)
Quarter: 2020Q1

REPORT INFORMATION
  Report Type: Report from Study
  Country: US (occurrence: US)
  Receive Date: 20200220
  Receipt Date: 20200220
  Transmission Date: 20200409
  Serious: Yes (Other)
  Sender: FDA-Public Use
  Company Number: US-AUROBINDO-AUR-APL-2020-008331

PATIENT

DRUGS (1)
  1. VANCOMYCIN [Suspect]
     Active Substance: VANCOMYCIN
     Indication: SKIN BACTERIAL INFECTION
     Dosage: UNK
     Route: 065

REACTIONS (3)
  - Bacteraemia [Unknown]
  - Therapy non-responder [Unknown]
  - Osteomyelitis [Unknown]
